FAERS Safety Report 21331898 (Version 2)
Quarter: 2022Q3

REPORT INFORMATION
  Report Type: Spontaneous
  Country: DE (occurrence: None)
  Receive Date: 20220914
  Receipt Date: 20220916
  Transmission Date: 20221026
  Serious: Yes (Other)
  Sender: FDA-Public Use
  Company Number: 2022A310250

PATIENT
  Age: 58 Year

DRUGS (2)
  1. QUETIAPINE [Interacting]
     Active Substance: QUETIAPINE
     Dosage: 150.0MG UNKNOWN
     Route: 065
  2. ESCITALOPRAM [Interacting]
     Active Substance: ESCITALOPRAM OXALATE
     Dosage: 20.0MG UNKNOWN
     Route: 065

REACTIONS (5)
  - Drug interaction [Unknown]
  - Electrocardiogram QT prolonged [Unknown]
  - Sinus tachycardia [Unknown]
  - Palpitations [Unknown]
  - Off label use [Unknown]
